FAERS Safety Report 6718341-1 (Version None)
Quarter: 2010Q2

REPORT INFORMATION
  Report Type: 
  Country: None (occurrence: None)
  Receive Date: 20100505
  Receipt Date: 20100422
  Transmission Date: 20101027
  Serious: Yes (Congenital Anomaly)
  Sender: FDA-Public Use
  Company Number: 167-20484-09090446

PATIENT
  Sex: Female

DRUGS (1)
  1. INNOHEP [Suspect]
     Indication: DRUG EXPOSURE DURING PREGNANCY
     Dosage: TRANSPLACENTAL
     Route: 064
     Dates: start: 20071120, end: 20080610

REACTIONS (3)
  - CAESAREAN SECTION [None]
  - CONGENITAL PYELOCALIECTASIS [None]
  - MATERNAL DRUGS AFFECTING FOETUS [None]
